FAERS Safety Report 6526687-5 (Version None)
Quarter: 2010Q1

REPORT INFORMATION
  Report Type: 
  Country: None (occurrence: None)
  Receive Date: 20100104
  Receipt Date: 20100104
  Transmission Date: 20100710
  Serious: Yes (Hospitalization, Other)
  Sender: FDA-Public Use
  Company Number: None

PATIENT
  Sex: Male
  Weight: 74.8435 kg

DRUGS (2)
  1. OXYCONTIN [Suspect]
     Indication: OSTEOCHONDROSIS
     Dosage: 20 MG 2 X SWALLOD HOLE
     Dates: start: 20091101, end: 20091201
  2. OXYCONTIN [Suspect]
     Dosage: 40MG 1X ORAL
     Route: 048

REACTIONS (1)
  - GASTROINTESTINAL MOTILITY DISORDER [None]
